FAERS Safety Report 4643429-9 (Version None)
Quarter: 2005Q2

REPORT INFORMATION
  Report Type: 
  Country: None (occurrence: None)
  Receive Date: 20050324
  Receipt Date: 20050223
  Transmission Date: 20051028
  Serious: Yes (Life-Threatening, Hospitalization, Disabling)
  Sender: FDA-Public Use
  Company Number: 212505

PATIENT
  Age: 73 Year
  Sex: Female
  Weight: 46 kg

DRUGS (8)
  1. AVASTIN [Suspect]
     Indication: COLON CANCER METASTATIC
     Dosage: 230 MG,Q2W,INTRAVENOUS
     Route: 042
     Dates: start: 20041104, end: 20041126
  2. FLUOROURACIL [Concomitant]
  3. OXALIPLATIN (OXALIPLATIN) [Concomitant]
  4. LEUCOVORIN CALCIUM [Concomitant]
  5. MEGACE (MEGESTREL ACETATE) [Concomitant]
  6. ICAR-C (ASCORBIC ACID) [Concomitant]
  7. TYLENOL [Concomitant]
  8. VITAMINS (VITAMINS NOS) [Concomitant]

REACTIONS (1)
  - CEREBROVASCULAR ACCIDENT [None]
